FAERS Safety Report 5057815-9 (Version None)
Quarter: 2006Q3

REPORT INFORMATION
  Report Type: 
  Country: None (occurrence: None)
  Receive Date: 20060721
  Receipt Date: 20060301
  Transmission Date: 20061208
  Serious: No
  Sender: FDA-Public Use
  Company Number: US-GLAXOSMITHKLINE-A0595730A

PATIENT
  Age: 39 Year
  Sex: Female

DRUGS (3)
  1. AVANDIA [Suspect]
     Dosage: 4MG PER DAY
     Route: 048
  2. METFORMIN [Concomitant]
  3. MULTIVITAMIN [Concomitant]

REACTIONS (4)
  - EYE PAIN [None]
  - EYE SWELLING [None]
  - FATIGUE [None]
  - VISION BLURRED [None]
